FAERS Safety Report 12784776 (Version 1)
Quarter: 2016Q3

REPORT INFORMATION
  Report Type: Report from Study
  Country: TW (occurrence: TW)
  Receive Date: 20160927
  Receipt Date: 20160927
  Transmission Date: 20161109
  Serious: Yes (Hospitalization)
  Sender: FDA-Public Use
  Company Number: TW-ELI_LILLY_AND_COMPANY-BMS-2015-069836

PATIENT
  Age: 59 Year
  Sex: Male
  Weight: 64 kg

DRUGS (8)
  1. CAMPTO [Suspect]
     Active Substance: IRINOTECAN
     Dosage: 246 (UNSPECIFIED UNIT)
     Route: 065
     Dates: start: 20140725
  2. 5-FU                               /00098801/ [Suspect]
     Active Substance: FLUOROURACIL
     Indication: COLORECTAL CANCER METASTATIC
     Dosage: 3792 (UNSPECIFIED UNIT)
     Route: 065
     Dates: start: 20140321
  3. 5-FU                               /00098801/ [Suspect]
     Active Substance: FLUOROURACIL
     Dosage: 3936 (UNSPECIFIED UNIT)
     Route: 065
     Dates: start: 20140725
  4. CETUXIMAB [Suspect]
     Active Substance: CETUXIMAB
     Indication: COLORECTAL CANCER METASTATIC
     Dosage: 700 (UNSPECIFIED UNIT)
     Route: 042
     Dates: start: 20140403
  5. CETUXIMAB [Suspect]
     Active Substance: CETUXIMAB
     Dosage: UNK
     Route: 042
     Dates: start: 20140815
  6. CAMPTO [Suspect]
     Active Substance: IRINOTECAN
     Dosage: UNK
     Route: 065
     Dates: start: 20140815
  7. 5-FU                               /00098801/ [Suspect]
     Active Substance: FLUOROURACIL
     Dosage: UNK
     Route: 065
     Dates: start: 20140815
  8. CAMPTO [Suspect]
     Active Substance: IRINOTECAN
     Indication: COLORECTAL CANCER METASTATIC
     Dosage: 237 (UNSPECIFIED UNIT)
     Route: 065
     Dates: start: 20140321

REACTIONS (1)
  - Neutropenia [Recovered/Resolved]

NARRATIVE: CASE EVENT DATE: 20140808
